FAERS Safety Report 25302672 (Version 1)
Quarter: 2025Q2

REPORT INFORMATION
  Report Type: Spontaneous
  Country: JP (occurrence: JP)
  Receive Date: 20250512
  Receipt Date: 20250512
  Transmission Date: 20250716
  Serious: Yes (Life-Threatening, Hospitalization)
  Sender: BAUSCH AND LOMB
  Company Number: JP-MLMSERVICE-20250430-PI494682-00217-1

PATIENT
  Age: 39 Year
  Sex: Male
  Weight: 87.2 kg

DRUGS (1)
  1. METFORMIN [Suspect]
     Active Substance: METFORMIN HYDROCHLORIDE
     Indication: Type 2 diabetes mellitus
     Route: 065

REACTIONS (9)
  - Lactic acidosis [Recovering/Resolving]
  - Circulatory collapse [Recovering/Resolving]
  - Shock [Recovering/Resolving]
  - Cardiac arrest [Recovering/Resolving]
  - Acute kidney injury [Recovered/Resolved]
  - Coma [Recovering/Resolving]
  - Hypoxia [Recovering/Resolving]
  - Hepatic enzyme increased [Recovering/Resolving]
  - Hyperglycaemia [Recovering/Resolving]
